FAERS Safety Report 4652187-3 (Version None)
Quarter: 2005Q2

REPORT INFORMATION
  Report Type: 
  Country: None (occurrence: None)
  Receive Date: 20050504
  Receipt Date: 20050331
  Transmission Date: 20051028
  Serious: Yes (Other)
  Sender: FDA-Public Use
  Company Number: US-AMGEN-US124722

PATIENT
  Sex: Male
  Weight: 56.8 kg

DRUGS (1)
  1. PROCRIT [Suspect]
     Indication: MYELODYSPLASTIC SYNDROME
     Dates: start: 20000101, end: 20030101

REACTIONS (4)
  - APLASIA PURE RED CELL [None]
  - BLOOD IRON ABNORMAL [None]
  - HEPATITIS [None]
  - THERAPEUTIC RESPONSE DECREASED [None]
